FAERS Safety Report 6273313-9 (Version None)
Quarter: 2009Q3

REPORT INFORMATION
  Report Type: 
  Country: None (occurrence: None)
  Receive Date: 20090720
  Receipt Date: 20090709
  Transmission Date: 20100115
  Serious: Yes (Other)
  Sender: FDA-Public Use
  Company Number: JP-ROCHE-644207

PATIENT

DRUGS (1)
  1. XELODA [Suspect]
     Indication: COLON CANCER
     Dosage: XELODA 300.
     Route: 048
     Dates: start: 20081024, end: 20081107

REACTIONS (1)
  - RETINAL VEIN OCCLUSION [None]
